FAERS Safety Report 25142772 (Version 1)
Quarter: 2025Q1

REPORT INFORMATION
  Report Type: Spontaneous
  Country: GR (occurrence: GR)
  Receive Date: 20250331
  Receipt Date: 20250331
  Transmission Date: 20250409
  Serious: Yes (Other)
  Sender: ACERUS PHARMACEUTICALS CORPORATION
  Company Number: GR-ACERUSPHRM-2025-GR-000001

PATIENT
  Age: 38 Year
  Sex: Male

DRUGS (3)
  1. TESTOSTERONE [Suspect]
     Active Substance: TESTOSTERONE
     Indication: Blood testosterone decreased
     Route: 030
  2. ESCITALOPRAM [Suspect]
     Active Substance: ESCITALOPRAM OXALATE
     Indication: Product used for unknown indication
     Route: 065
  3. UNSPECIFIED INGREDIENT [Suspect]
     Active Substance: UNSPECIFIED INGREDIENT
     Indication: Loss of consciousness

REACTIONS (14)
  - Abdominal pain [Recovered/Resolved]
  - Hyperhidrosis [Recovered/Resolved]
  - Vomiting [Recovered/Resolved]
  - Dyskinesia [Recovered/Resolved]
  - Ill-defined disorder [Recovered/Resolved]
  - Pallor [Recovered/Resolved]
  - Hypotension [Recovered/Resolved]
  - Brugada syndrome [Unknown]
  - Myalgia [Recovered/Resolved]
  - Fatigue [Recovered/Resolved]
  - Disturbance in attention [Not Recovered/Not Resolved]
  - Anxiety [Not Recovered/Not Resolved]
  - Blood testosterone increased [Recovered/Resolved]
  - Loss of consciousness [Recovered/Resolved]
